FAERS Safety Report 16828743 (Version 1)
Quarter: 2019Q3

REPORT INFORMATION
  Report Type: Spontaneous
  Country: US (occurrence: US)
  Receive Date: 20190919
  Receipt Date: 20190919
  Transmission Date: 20191005
  Serious: Yes (Other)
  Sender: FDA-Public Use
  Company Number: US-PFIZER INC-2019402449

PATIENT
  Age: 66 Year
  Sex: Female

DRUGS (9)
  1. PRISTIQ EXTENDED-RELEASE [Suspect]
     Active Substance: DESVENLAFAXINE SUCCINATE
     Dosage: UNK
     Route: 048
     Dates: end: 201908
  2. KORLYM [Suspect]
     Active Substance: MIFEPRISTONE
     Dosage: 900 MG, 1X/DAY
     Route: 048
     Dates: end: 201603
  3. KORLYM [Suspect]
     Active Substance: MIFEPRISTONE
     Indication: CUSHING^S SYNDROME
     Dosage: UNK
     Route: 048
     Dates: start: 201504
  4. KORLYM [Suspect]
     Active Substance: MIFEPRISTONE
     Dosage: 600 MG, 1X/DAY [QD (ONE A DAY), ORAL]
     Route: 048
     Dates: start: 20190731, end: 20190802
  5. LISINOPRIL. [Concomitant]
     Active Substance: LISINOPRIL
     Dosage: UNK
  6. SERTRALINE [Concomitant]
     Active Substance: SERTRALINE HYDROCHLORIDE
     Dosage: UNK
  7. IRON [FERROUS SULFATE] [Concomitant]
     Dosage: UNK
  8. KORLYM [Suspect]
     Active Substance: MIFEPRISTONE
     Dosage: 300 MG, 1X/DAY [QD (ONE A DAY), ORAL]
     Route: 048
     Dates: start: 20190803, end: 20190805
  9. KORLYM [Suspect]
     Active Substance: MIFEPRISTONE
     Dosage: 600 MG, 1X/DAY (600 MG, QD (ONE A DAY), ORAL)
     Route: 048
     Dates: start: 20190806

REACTIONS (11)
  - Feeling abnormal [Unknown]
  - Disease recurrence [Unknown]
  - Insomnia [Recovering/Resolving]
  - Apparent death [Unknown]
  - Dizziness [Unknown]
  - Asthenia [Unknown]
  - Tremor [Recovering/Resolving]
  - Fatigue [Unknown]
  - Dysstasia [Unknown]
  - Gait disturbance [Unknown]
  - Balance disorder [Unknown]
